FAERS Safety Report 5804766-5 (Version None)
Quarter: 2008Q3

REPORT INFORMATION
  Report Type: 
  Country: None (occurrence: None)
  Receive Date: 20080707
  Receipt Date: 20080219
  Transmission Date: 20090109
  Serious: Yes (Hospitalization)
  Sender: FDA-Public Use
  Company Number: 548408

PATIENT
  Age: 29 Year
  Sex: Male

DRUGS (5)
  1. MYCOPHENOLATE MOFETIL [Suspect]
     Indication: IMMUNOSUPPRESSION
     Dosage: 1500 MG 2 PER DAY
  2. SULFAMETHOXAZOLE AND TRIMETHOPRIM [Suspect]
     Indication: ANTIFUNGAL PROPHYLAXIS
  3. VALGANCICLOVIR HCL [Suspect]
     Indication: ANTIVIRAL PROPHYLAXIS
  4. PREDNISONE [Concomitant]
  5. TACROLIMUS [Concomitant]

REACTIONS (2)
  - HISTOPLASMOSIS DISSEMINATED [None]
  - RENAL FAILURE ACUTE [None]
